FAERS Safety Report 11974927 (Version 1)
Quarter: 2016Q1

REPORT INFORMATION
  Report Type: Report from Study
  Country: DE (occurrence: DE)
  Receive Date: 20160128
  Receipt Date: 20160128
  Transmission Date: 20160526
  Serious: Yes (Death)
  Sender: FDA-Public Use
  Company Number: DE-ABBVIE-16P-062-1545860-00

PATIENT
  Age: 77 Year
  Sex: Male

DRUGS (1)
  1. DUODOPA [Suspect]
     Active Substance: CARBIDOPA\LEVODOPA
     Indication: PARKINSON^S DISEASE
     Dosage: MD: 9.0 ML; CRD: 5.9 ML/H; CRN: 3.9 ML/H; ED: 1.5 ML
     Route: 050
     Dates: start: 20130902

REACTIONS (1)
  - Death [Fatal]

NARRATIVE: CASE EVENT DATE: 20160121
